FAERS Safety Report 6983740-X (Version None)
Quarter: 2010Q3

REPORT INFORMATION
  Report Type: 
  Country: None (occurrence: None)
  Receive Date: 20100914
  Receipt Date: 20081208
  Transmission Date: 20110219
  Serious: No
  Sender: FDA-Public Use
  Company Number: US-WYE-H07112608

PATIENT

DRUGS (4)
  1. PHOSPHOLINE IODIDE [Suspect]
     Dosage: NOT PROVIDED/USED IN BOTH EYES
     Route: 047
  2. COSOPT [Concomitant]
  3. LUMIGAN [Concomitant]
  4. METHAZOLAMIDE [Concomitant]

REACTIONS (1)
  - DRUG INEFFECTIVE [None]
